FAERS Safety Report 9823028 (Version 2)
Quarter: 2014Q1

REPORT INFORMATION
  Report Type: Spontaneous
  Country: US (occurrence: US)
  Receive Date: 20140116
  Receipt Date: 20140116
  Transmission Date: 20141002
  Serious: No
  Sender: FDA-Public Use
  Company Number: US-GILEAD-2011-0035591

PATIENT
  Age: 57 Year
  Sex: Female

DRUGS (9)
  1. LETAIRIS [Suspect]
     Indication: PULMONARY ARTERIAL HYPERTENSION
     Route: 048
  2. LETAIRIS [Suspect]
     Route: 048
  3. LETAIRIS [Suspect]
     Route: 048
     Dates: start: 201011
  4. COUMADIN [Concomitant]
  5. NEXIUM [Concomitant]
  6. SEROQUEL [Concomitant]
  7. ABILIFY [Concomitant]
  8. BENZTROPINE MESYLATE [Concomitant]
  9. ZOLOFT [Concomitant]

REACTIONS (3)
  - Chest pain [Unknown]
  - Fatigue [Unknown]
  - Accidental overdose [Unknown]
